FAERS Safety Report 14126799 (Version 1)
Quarter: 2017Q4

REPORT INFORMATION
  Report Type: Spontaneous
  Country: CN (occurrence: CN)
  Receive Date: 20171025
  Receipt Date: 20171025
  Transmission Date: 20180321
  Serious: Yes (Hospitalization, Other)
  Sender: FDA-Public Use
  Company Number: CN-BRISTOL-MYERS SQUIBB COMPANY-BMS-2017-096274

PATIENT
  Age: 80 Year
  Sex: Female
  Weight: 41 kg

DRUGS (1)
  1. GLUCOPHAGE [Suspect]
     Active Substance: METFORMIN HYDROCHLORIDE
     Indication: DIABETES MELLITUS
     Dosage: 0.85 G, QD
     Route: 048
     Dates: start: 20170101, end: 20170801

REACTIONS (6)
  - Dizziness [Recovering/Resolving]
  - Fatigue [Recovering/Resolving]
  - Oedema peripheral [Recovering/Resolving]
  - Pain [Recovering/Resolving]
  - Gastrointestinal haemorrhage [Recovering/Resolving]
  - Faeces discoloured [Recovering/Resolving]

NARRATIVE: CASE EVENT DATE: 20170801
